FAERS Safety Report 9565136 (Version 2)
Quarter: 2013Q4

REPORT INFORMATION
  Report Type: Spontaneous
  Country: US (occurrence: US)
  Receive Date: 20130930
  Receipt Date: 20131017
  Transmission Date: 20140711
  Serious: No
  Sender: FDA-Public Use
  Company Number: US-009507513-1309USA013936

PATIENT
  Age: 49 Year
  Sex: Female

DRUGS (2)
  1. AZASITE [Suspect]
     Indication: CONJUNCTIVITIS
     Dosage: ONE DROP TWO TIMES A DAY
     Route: 047
     Dates: start: 20130903
  2. CLONAZEPAM [Concomitant]
     Dosage: UNK

REACTIONS (6)
  - Conjunctivitis [Not Recovered/Not Resolved]
  - Eye irritation [Not Recovered/Not Resolved]
  - Accidental exposure to product [Unknown]
  - Drug dose omission [Unknown]
  - Product container issue [Unknown]
  - Product physical issue [Unknown]
